FAERS Safety Report 17133014 (Version 1)
Quarter: 2019Q4

REPORT INFORMATION
  Report Type: Spontaneous
  Country: ES (occurrence: ES)
  Receive Date: 20191210
  Receipt Date: 20191210
  Transmission Date: 20200122
  Serious: Yes (Hospitalization)
  Sender: FDA-Public Use
  Company Number: ES-TEVA-2019-ES-1148236

PATIENT
  Age: 60 Year
  Sex: Female

DRUGS (6)
  1. CONDROSAN [Concomitant]
  2. ENALAPRIL (2142A) [Concomitant]
     Active Substance: ENALAPRIL
  3. OMEPRAZOL (2141A) [Concomitant]
     Active Substance: OMEPRAZOLE
  4. TOPIRAMATO (7245A) [Concomitant]
     Active Substance: TOPIRAMATE
  5. HIDROCLOROTIAZIDA (1343A) [Concomitant]
     Active Substance: HYDROCHLOROTHIAZIDE
  6. ATORVASTATINA [ATORVASTATIN] [Suspect]
     Active Substance: ATORVASTATIN
     Indication: HYPERLIPIDAEMIA
     Dosage: 30 MG
     Route: 048
     Dates: start: 20190717, end: 20191029

REACTIONS (1)
  - Intestinal obstruction [Recovered/Resolved]

NARRATIVE: CASE EVENT DATE: 20191029
